FAERS Safety Report 18565935 (Version 1)
Quarter: 2020Q4

REPORT INFORMATION
  Report Type: Spontaneous
  Country: DE (occurrence: DE)
  Receive Date: 20201201
  Receipt Date: 20201201
  Transmission Date: 20210114
  Serious: Yes (Hospitalization, Other)
  Sender: FDA-Public Use
  Company Number: DE-ASTRAZENECA-2020SF57342

PATIENT
  Age: 61 Year
  Sex: Male

DRUGS (10)
  1. ENTRESTO [Concomitant]
     Active Substance: SACUBITRIL\VALSARTAN
     Dosage: INCREASED
  2. EZETIMIBE/ATORVASTATIN [Concomitant]
     Active Substance: ATORVASTATIN\EZETIMIBE
     Dosage: 10/80 MG 0-0-1
  3. ENTRESTO [Concomitant]
     Active Substance: SACUBITRIL\VALSARTAN
     Dosage: 24/26MG 1-0-1
  4. PRASUGREL. [Concomitant]
     Active Substance: PRASUGREL
  5. BISOPROLOL [Concomitant]
     Active Substance: BISOPROLOL
     Dosage: 2.5-0-5 MG
  6. TORASEMIDE [Concomitant]
     Active Substance: TORSEMIDE
     Dosage: 10-15-0 MG
  7. DAPAGLIFLOZIN. [Suspect]
     Active Substance: DAPAGLIFLOZIN
     Indication: CARDIAC FAILURE
     Dosage: 10.0MG UNKNOWN
     Route: 048
  8. ASA [Concomitant]
     Active Substance: ASPIRIN
  9. EPLERENONE. [Concomitant]
     Active Substance: EPLERENONE
     Dosage: 50 MG 1-0-0
  10. IVABRADINE [Concomitant]
     Active Substance: IVABRADINE
     Dosage: 5 MG 1-0-1

REACTIONS (1)
  - Cardiac failure chronic [Unknown]
